FAERS Safety Report 17110150 (Version 1)
Quarter: 2019Q4

REPORT INFORMATION
  Report Type: Spontaneous
  Country: US (occurrence: US)
  Receive Date: 20191108
  Receipt Date: 20191108
  Transmission Date: 20200122
  Serious: Yes (Hospitalization)
  Sender: FDA-Public Use
  Company Number: None

PATIENT
  Age: 61 Year
  Sex: Male

DRUGS (12)
  1. STELARA [Suspect]
     Active Substance: USTEKINUMAB
     Indication: HYPERTENSION
     Dosage: ?          OTHER FREQUENCY:Q8WK;?
     Route: 058
     Dates: start: 20190727
  2. PREDNISONE. [Concomitant]
     Active Substance: PREDNISONE
  3. RAMIPRIL. [Concomitant]
     Active Substance: RAMIPRIL
  4. CHOLESTYRAM [Concomitant]
     Active Substance: CHOLESTYRAMINE
  5. COLESTIPOL [Concomitant]
     Active Substance: COLESTIPOL
  6. HYDROCHLOROT [Concomitant]
     Active Substance: HYDROCHLOROTHIAZIDE
  7. HYDROCO/APAP [Concomitant]
     Active Substance: ACETAMINOPHEN\HYDROCODONE
  8. HYOSCYAMINE. [Concomitant]
     Active Substance: HYOSCYAMINE
  9. ANASTROXZOLE [Concomitant]
  10. PANTOPRAZOLE [Concomitant]
     Active Substance: PANTOPRAZOLE
  11. ROSUVASTATIN. [Concomitant]
     Active Substance: ROSUVASTATIN
  12. CYCLOBENZAPR [Concomitant]
     Active Substance: CYCLOBENZAPRINE

REACTIONS (3)
  - Diarrhoea [None]
  - Pain in extremity [None]
  - Arthralgia [None]

NARRATIVE: CASE EVENT DATE: 20191001
